FAERS Safety Report 9588875 (Version 1)
Quarter: 2013Q4

REPORT INFORMATION
  Report Type: Spontaneous
  Country: US (occurrence: US)
  Receive Date: 20131003
  Receipt Date: 20131003
  Transmission Date: 20140711
  Serious: No
  Sender: FDA-Public Use
  Company Number: US-AMGEN-USASP2012066183

PATIENT
  Age: 56 Year
  Sex: Female
  Weight: 50.79 kg

DRUGS (5)
  1. ENBREL [Suspect]
     Indication: RHEUMATOID ARTHRITIS
     Dosage: 50 MG, QWK
     Route: 058
  2. METHOTREXAT                        /00113801/ [Concomitant]
     Dosage: 2.5 MG, UNK
  3. ADVIL                              /00044201/ [Concomitant]
  4. FOLIC ACID [Concomitant]
  5. VALIUM                             /00017001/ [Concomitant]
     Dosage: 5 MG, UNK

REACTIONS (5)
  - Headache [Unknown]
  - Oropharyngeal pain [Unknown]
  - Rhinorrhoea [Unknown]
  - Cough [Unknown]
  - Sinus disorder [Unknown]
